FAERS Safety Report 12644589 (Version 1)
Quarter: 2016Q3

REPORT INFORMATION
  Report Type: Spontaneous
  Country: US (occurrence: US)
  Receive Date: 20160811
  Receipt Date: 20160811
  Transmission Date: 20161109
  Serious: Yes (Hospitalization, Other)
  Sender: FDA-Public Use
  Company Number: US-ASTRAZENECA-2016SE85287

PATIENT
  Age: 25375 Day
  Sex: Female
  Weight: 83.9 kg

DRUGS (6)
  1. PULMICORT FLEXHALER [Suspect]
     Active Substance: BUDESONIDE
     Indication: CHRONIC OBSTRUCTIVE PULMONARY DISEASE
     Dosage: 180 UG, 1 PUFF DAILY
     Route: 055
  2. PULMICORT FLEXHALER [Suspect]
     Active Substance: BUDESONIDE
     Indication: PNEUMONITIS
     Dosage: 180 UG, 1 PUFF DAILY
     Route: 055
  3. SYMBICORT [Suspect]
     Active Substance: BUDESONIDE\FORMOTEROL FUMARATE DIHYDRATE
     Indication: CHRONIC OBSTRUCTIVE PULMONARY DISEASE
     Dosage: 160/4.5 UG, ONE PUFF DAILY
     Route: 055
     Dates: start: 2013
  4. PULMICORT FLEXHALER [Suspect]
     Active Substance: BUDESONIDE
     Indication: CHRONIC OBSTRUCTIVE PULMONARY DISEASE
     Dosage: 180 UG, 1 PUFF DAILY
     Route: 055
     Dates: start: 20160711
  5. PULMICORT FLEXHALER [Suspect]
     Active Substance: BUDESONIDE
     Indication: PNEUMONITIS
     Dosage: 180 UG, 1 PUFF DAILY
     Route: 055
     Dates: start: 20160711
  6. COMBIVENT [Concomitant]
     Active Substance: ALBUTEROL SULFATE\IPRATROPIUM BROMIDE
     Dosage: ONE PUFF FOUR TIMES PER DAY

REACTIONS (6)
  - Off label use [Unknown]
  - Squamous cell carcinoma of lung [Unknown]
  - Pneumonitis [Unknown]
  - Eye pain [Unknown]
  - Product packaging issue [Unknown]
  - Product use issue [Unknown]

NARRATIVE: CASE EVENT DATE: 20140505
